FAERS Safety Report 17186291 (Version 3)
Quarter: 2020Q1

REPORT INFORMATION
  Report Type: Report from Study
  Country: US (occurrence: US)
  Receive Date: 20191220
  Receipt Date: 20200131
  Transmission Date: 20200409
  Serious: Yes (Death)
  Sender: FDA-Public Use
  Company Number: US-LUNDBECK-DKLU3009169

PATIENT
  Age: 68 Year
  Sex: Male
  Weight: 113 kg

DRUGS (19)
  1. VENLAFAXINE ER [Concomitant]
     Active Substance: VENLAFAXINE HYDROCHLORIDE
     Indication: ANXIETY
     Route: 048
     Dates: start: 20171115
  2. DROXIDOPA [Concomitant]
     Active Substance: DROXIDOPA
     Route: 048
     Dates: start: 20190807, end: 20190808
  3. MELATONIN [Concomitant]
     Active Substance: MELATONIN
     Indication: INSOMNIA
     Route: 048
  4. FISH OIL [Concomitant]
     Active Substance: FISH OIL
     Indication: VITAMIN SUPPLEMENTATION
     Route: 048
     Dates: start: 2019
  5. DROXIDOPA [Concomitant]
     Active Substance: DROXIDOPA
     Indication: ORTHOSTATIC HYPOTENSION
     Route: 048
     Dates: start: 20190801, end: 20190802
  6. SINEMET CR [Concomitant]
     Active Substance: CARBIDOPA\LEVODOPA
     Indication: PARKINSON^S DISEASE
     Route: 048
     Dates: start: 20171011
  7. DUOPA [Concomitant]
     Active Substance: CARBIDOPA\LEVODOPA
     Indication: PARKINSON^S DISEASE
     Route: 051
     Dates: start: 20180716
  8. TRAZODONE [Concomitant]
     Active Substance: TRAZODONE HYDROCHLORIDE
     Indication: INSOMNIA
     Route: 048
     Dates: start: 20190912, end: 20191016
  9. FLOMAX [Concomitant]
     Active Substance: TAMSULOSIN HYDROCHLORIDE
     Indication: BENIGN PROSTATIC HYPERPLASIA
     Route: 048
     Dates: start: 2016
  10. QUETIAPINE. [Concomitant]
     Active Substance: QUETIAPINE
     Indication: INSOMNIA
     Route: 048
     Dates: start: 20191016, end: 20191113
  11. MEMANTINE ER [Concomitant]
     Indication: COGNITIVE DISORDER
     Route: 048
     Dates: start: 20190613
  12. TYLENOL PM [Concomitant]
     Active Substance: ACETAMINOPHEN\DIPHENHYDRAMINE
     Indication: INSOMNIA
     Route: 048
     Dates: start: 201901
  13. QUETIAPINE. [Concomitant]
     Active Substance: QUETIAPINE
     Route: 048
     Dates: start: 20191114
  14. DROXIDOPA [Concomitant]
     Active Substance: DROXIDOPA
     Route: 048
     Dates: start: 20190805, end: 20190806
  15. DROXIDOPA [Concomitant]
     Active Substance: DROXIDOPA
     Route: 048
     Dates: start: 20190809, end: 20190811
  16. DROXIDOPA [Concomitant]
     Active Substance: DROXIDOPA
     Route: 048
     Dates: start: 20190812, end: 20191113
  17. DROXIDOPA [Suspect]
     Active Substance: DROXIDOPA
     Indication: ORTHOSTATIC HYPOTENSION
     Route: 048
     Dates: start: 20191114, end: 20191216
  18. DROXIDOPA [Concomitant]
     Active Substance: DROXIDOPA
     Route: 048
     Dates: start: 20190803, end: 20190804
  19. VENLAFAXINE ER [Concomitant]
     Active Substance: VENLAFAXINE HYDROCHLORIDE
     Indication: DEPRESSED MOOD

REACTIONS (1)
  - Cardiac arrest [Fatal]

NARRATIVE: CASE EVENT DATE: 20191216
